FAERS Safety Report 18139396 (Version 1)
Quarter: 2020Q3

REPORT INFORMATION
  Report Type: Report from Study
  Country: MX (occurrence: MX)
  Receive Date: 20200812
  Receipt Date: 20200812
  Transmission Date: 20201103
  Serious: Yes (Death, Other)
  Sender: FDA-Public Use
  Company Number: MX-UCBSA-2020031346

PATIENT
  Age: 86 Year
  Sex: Female

DRUGS (2)
  1. LEVETIRACETAM. [Suspect]
     Active Substance: LEVETIRACETAM
     Indication: OFF LABEL USE
  2. LEVETIRACETAM. [Suspect]
     Active Substance: LEVETIRACETAM
     Indication: CEREBRAL DISORDER
     Dosage: 500 MILLIGRAM, 2X/DAY (BID)
     Route: 048
     Dates: start: 2015, end: 20180730

REACTIONS (3)
  - Hypertensive crisis [Fatal]
  - Cerebral infarction [Unknown]
  - Off label use [Unknown]

NARRATIVE: CASE EVENT DATE: 2015
